FAERS Safety Report 4996046-5 (Version None)
Quarter: 2006Q2

REPORT INFORMATION
  Report Type: 
  Country: None (occurrence: None)
  Receive Date: 20060504
  Receipt Date: 20060418
  Transmission Date: 20061013
  Serious: Yes (Other)
  Sender: FDA-Public Use
  Company Number: 224514

PATIENT
  Sex: 0

DRUGS (1)
  1. AVASTIN [Suspect]
     Dates: start: 20051214, end: 20060215

REACTIONS (1)
  - INTESTINAL PERFORATION [None]
